FAERS Safety Report 16891479 (Version 2)
Quarter: 2020Q1

REPORT INFORMATION
  Report Type: Spontaneous
  Country: KE (occurrence: KE)
  Receive Date: 20191007
  Receipt Date: 20200129
  Transmission Date: 20200409
  Serious: Yes (Death, Other)
  Sender: FDA-Public Use
  Company Number: KE-SA-2019SA275671

PATIENT

DRUGS (1)
  1. CEREZYME [Suspect]
     Active Substance: IMIGLUCERASE
     Dosage: UNK, UNK UNK
     Route: 065

REACTIONS (1)
  - Choking [Fatal]
